FAERS Safety Report 10188381 (Version 1)
Quarter: 2014Q2

REPORT INFORMATION
  Report Type: Spontaneous
  Country: US (occurrence: US)
  Receive Date: 20140522
  Receipt Date: 20140522
  Transmission Date: 20141212
  Serious: No
  Sender: FDA-Public Use
  Company Number: US-BAYER-2014-076064

PATIENT
  Age: 58 Year
  Sex: 0

DRUGS (1)
  1. CIPRO [Suspect]

REACTIONS (2)
  - Drug hypersensitivity [None]
  - Dermatitis allergic [None]
